FAERS Safety Report 4657345-X (Version None)
Quarter: 2005Q2

REPORT INFORMATION
  Report Type: 
  Country: None (occurrence: None)
  Receive Date: 20050408
  Receipt Date: 20041223
  Transmission Date: 20051028
  Serious: No
  Sender: FDA-Public Use
  Company Number: 236211K04USA

PATIENT
  Age: 44 Year
  Sex: Female

DRUGS (2)
  1. REBIF [Suspect]
     Indication: MULTIPLE SCLEROSIS
     Dosage: 44 MCG, 3 IN 1 WEEKS, SUBCUTANEOUS
     Route: 058
     Dates: start: 20031222
  2. NAPROXEN [Concomitant]

REACTIONS (7)
  - ABDOMINAL DISTENSION [None]
  - ABDOMINAL PAIN LOWER [None]
  - CELLULITIS [None]
  - HAEMANGIOMA OF LIVER [None]
  - INJECTION SITE HAEMORRHAGE [None]
  - INJECTION SITE REACTION [None]
  - SKIN EXFOLIATION [None]
